FAERS Safety Report 4514800-0 (Version None)
Quarter: 2004Q4

REPORT INFORMATION
  Report Type: 
  Country: None (occurrence: None)
  Receive Date: 20041129
  Receipt Date: 20041129
  Transmission Date: 20050328
  Serious: Yes (Hospitalization)
  Sender: FDA-Public Use
  Company Number: None

PATIENT
  Age: 45 Year
  Sex: Male

DRUGS (2)
  1. DOXYCYCLINE [Suspect]
     Indication: LYME DISEASE
     Dosage: 400 MG IV Q DAY
     Route: 042
     Dates: start: 20041122
  2. DOXYCYCLINE [Suspect]

REACTIONS (4)
  - CHEST PAIN [None]
  - COUGH [None]
  - DYSPNOEA [None]
  - INFUSION RELATED REACTION [None]
